FAERS Safety Report 9596826 (Version 2)
Quarter: 2013Q4

REPORT INFORMATION
  Report Type: Report from Study
  Country: JP (occurrence: JP)
  Receive Date: 20131004
  Receipt Date: 20131004
  Transmission Date: 20140711
  Serious: Yes (Hospitalization, Disabling)
  Sender: FDA-Public Use
  Company Number: JP-ABBVIE-13P-087-1127353-00

PATIENT
  Age: 59 Year
  Sex: Male

DRUGS (9)
  1. RITONAVIR [Suspect]
     Indication: HIV INFECTION
     Route: 048
     Dates: start: 20120810
  2. MARAVIROC [Concomitant]
     Indication: HIV INFECTION
     Route: 048
     Dates: start: 20120810
  3. TRUVADA [Concomitant]
     Indication: HIV INFECTION
     Dosage: 1 IU AXA
     Route: 048
     Dates: start: 20120810
  4. DARUNAVIR [Concomitant]
     Indication: HIV INFECTION
     Route: 048
     Dates: start: 20120810
  5. VALACYCLOVIR HYDROCHLORIDE [Concomitant]
     Indication: CYTOMEGALOVIRUS CHORIORETINITIS
     Dosage: 4IU AXA
     Dates: start: 20120713, end: 20120802
  6. VALACYCLOVIR HYDROCHLORIDE [Concomitant]
     Dates: start: 20120803
  7. AZITHROMYCIN [Concomitant]
     Indication: PRODUCT USED FOR UNKNOWN INDICATION
     Dates: start: 20120710
  8. PENTAMIDINE [Concomitant]
     Indication: PRODUCT USED FOR UNKNOWN INDICATION
     Dates: start: 20120710
  9. IRBESARTAN [Concomitant]
     Dates: start: 20130113, end: 20130119

REACTIONS (1)
  - Cerebral haemorrhage [Unknown]
